FAERS Safety Report 9885557 (Version 3)
Quarter: 2014Q1

REPORT INFORMATION
  Report Type: Spontaneous
  Country: JP (occurrence: JP)
  Receive Date: 20140210
  Receipt Date: 20140225
  Transmission Date: 20141002
  Serious: Yes (Death, Hospitalization)
  Sender: FDA-Public Use
  Company Number: JP-NOVOPROD-398837

PATIENT
  Age: 73 Year
  Sex: Male
  Weight: 48 kg

DRUGS (3)
  1. TRESIBA CHU FLEXTOUCH [Suspect]
     Indication: TYPE 1 DIABETES MELLITUS
     Dosage: 8 IU, TID
     Route: 058
     Dates: start: 20140114, end: 20140117
  2. TRESIBA CHU FLEXTOUCH [Suspect]
     Dosage: UNK (2UNITS (MORNING) WAS ADDED)
     Route: 058
     Dates: start: 20140204
  3. NOVORAPID CHU [Suspect]
     Indication: TYPE 1 DIABETES MELLITUS
     Dosage: UNK
     Route: 065

REACTIONS (6)
  - Intestinal obstruction [Fatal]
  - Pneumonia aspiration [Recovered/Resolved]
  - Drug prescribing error [Unknown]
  - Hypoglycaemic unconsciousness [Recovered/Resolved]
  - Blood glucose fluctuation [Unknown]
  - Hypoglycaemia [Recovering/Resolving]
